FAERS Safety Report 8042448-2 (Version None)
Quarter: 2011Q4

REPORT INFORMATION
  Report Type: 
  Country: None (occurrence: None)
  Receive Date: 20111209
  Receipt Date: 20111111
  Transmission Date: 20120403
  Serious: No
  Sender: FDA-Public Use
  Company Number: 2011SP053390

PATIENT
  Age: 59 Year
  Sex: Female

DRUGS (4)
  1. CELEXA [Concomitant]
  2. VICTRELIS [Suspect]
     Indication: HEPATITIS C
     Dosage: 800 MG; Q8H; PO
     Route: 048
     Dates: start: 20110811
  3. PEG-INTRON [Suspect]
     Indication: PRODUCT USED FOR UNKNOWN INDICATION
  4. INSULIN [Concomitant]

REACTIONS (3)
  - LYMPHADENOPATHY [None]
  - NODULE [None]
  - INFECTION [None]
